FAERS Safety Report 7029942-8 (Version None)
Quarter: 2010Q4

REPORT INFORMATION
  Report Type: 
  Country: None (occurrence: None)
  Receive Date: 20101006
  Receipt Date: 20100923
  Transmission Date: 20110411
  Serious: Yes (Other)
  Sender: FDA-Public Use
  Company Number: GB-ELI_LILLY_AND_COMPANY-GB201008008802

PATIENT
  Sex: Female

DRUGS (9)
  1. FORTEO [Suspect]
     Indication: OSTEOPOROSIS
     Dosage: 20 UG, DAILY (1/D)
     Route: 058
     Dates: start: 20100301
  2. DOCUSATE [Concomitant]
     Indication: ABDOMINAL DISCOMFORT
     Dosage: 200 MG, 2/D
     Route: 048
  3. PARACETAMOL [Concomitant]
     Indication: ANALGESIC THERAPY
     Dosage: 1 G, 4/D
     Route: 048
  4. ASPIRIN [Concomitant]
     Indication: TRANSIENT ISCHAEMIC ATTACK
     Dosage: 75 MG, DAILY (1/D)
     Route: 048
  5. PERINDOPRIL [Concomitant]
     Indication: TRANSIENT ISCHAEMIC ATTACK
     Dosage: 4 MG, DAILY (1/D)
     Route: 048
  6. SIMVASTATIN [Concomitant]
     Indication: BLOOD CHOLESTEROL
     Dosage: 40 MG, DAILY (1/D)
     Route: 048
  7. GABAPENTIN [Concomitant]
     Indication: SPINAL COLUMN STENOSIS
     Dosage: 600 MG, 2/D
     Route: 048
  8. LANSOPRAZOLE [Concomitant]
     Indication: GASTRIC DISORDER
     Dosage: 15 MG, DAILY (1/D)
     Route: 048
  9. CALCIUM D3 [Concomitant]
     Indication: MINERAL SUPPLEMENTATION
     Dosage: 2 D/F, DAILY (1/D)
     Route: 048

REACTIONS (2)
  - GASTRITIS [None]
  - HIATUS HERNIA [None]
